FAERS Safety Report 8425479-X (Version None)
Quarter: 2012Q2

REPORT INFORMATION
  Report Type: 
  Country: None (occurrence: None)
  Receive Date: 20120605
  Receipt Date: 20120522
  Transmission Date: 20120825
  Serious: Yes (Life-Threatening, Hospitalization, Other)
  Sender: FDA-Public Use
  Company Number: 20120332

PATIENT
  Age: 39 Year
  Sex: Male

DRUGS (7)
  1. NICARDIPINE HYDROCHLORIDE INJECTION [Suspect]
     Indication: HYPERTENSION
     Dosage: 4.17 UG/KG/MIN; INTRAVENOUS DRIP
     Route: 041
  2. MIDAZOLAM [Suspect]
     Indication: SEDATION
     Dosage: 3 MG/HOUR INTRAVENOUS DRIP
     Route: 041
  3. SEVOFLURANE [Suspect]
     Indication: ANAESTHESIA
  4. FENTANYL [Concomitant]
  5. THIAMYLAL SODIUM [Concomitant]
  6. VECURONIUM BROMIDE [Concomitant]
  7. DILTIAZEM [Suspect]
     Indication: TACHYCARDIA
     Dosage: 4.5 UG/KG/MIN; INTRAVENOUS DRIP
     Route: 041

REACTIONS (4)
  - CARDIAC ARREST [None]
  - DRUG INTERACTION [None]
  - SINUS ARREST [None]
  - TOXICITY TO VARIOUS AGENTS [None]
